FAERS Safety Report 7452137-0 (Version None)
Quarter: 2011Q2

REPORT INFORMATION
  Report Type: 
  Country: None (occurrence: None)
  Receive Date: 20110502
  Receipt Date: 20110428
  Transmission Date: 20111010
  Serious: Yes (Hospitalization, Disabling, Other)
  Sender: FDA-Public Use
  Company Number: DK-ABBOTT-07P-044-0431070-00

PATIENT
  Sex: Female
  Weight: 66.5 kg

DRUGS (1)
  1. ADALIMUMAB [Suspect]
     Indication: RHEUMATOID ARTHRITIS
     Route: 058
     Dates: start: 20051004, end: 20071024

REACTIONS (6)
  - GENERAL PHYSICAL HEALTH DETERIORATION [None]
  - POLYMERASE CHAIN REACTION [None]
  - BREAST CANCER [None]
  - MYCOBACTERIAL INFECTION [None]
  - DISSEMINATED TUBERCULOSIS [None]
  - PALPITATIONS [None]
